FAERS Safety Report 9683927 (Version 1)
Quarter: 2013Q4

REPORT INFORMATION
  Report Type: Spontaneous
  Country: US (occurrence: US)
  Receive Date: 20131112
  Receipt Date: 20131112
  Transmission Date: 20140711
  Serious: No
  Sender: FDA-Public Use
  Company Number: US-MALLINCKRODT-T201304416

PATIENT
  Sex: Male
  Weight: 108.84 kg

DRUGS (8)
  1. FENTANYL TRANSDERMAL SYSTEM [Suspect]
     Indication: PAIN
     Dosage: 25 UG/HR, 1 PATCH Q72H
     Route: 062
     Dates: start: 201304, end: 2013
  2. FENTANYL TRANSDERMAL SYSTEM [Suspect]
     Dosage: 25 UG/HR, 2 PATCHES Q72H
     Route: 062
     Dates: start: 2013, end: 2013
  3. FENTANYL TRANSDERMAL SYSTEM [Suspect]
     Dosage: 75 UG/HR, 1 PATCH Q72H
     Route: 062
     Dates: start: 2013, end: 2013
  4. FENTANYL TRANSDERMAL SYSTEM [Suspect]
     Dosage: 100 UG/HR, 1 PATCH Q72H
     Route: 062
     Dates: start: 2013, end: 2013
  5. FENTANYL TRANSDERMAL SYSTEM [Suspect]
     Dosage: 100 UG/HR, 1 PATCH Q24H
     Route: 062
     Dates: start: 201307
  6. HYDROCODONE W/ACETAMINOPHEN [Concomitant]
     Indication: BREAKTHROUGH PAIN
     Dosage: 10/325 MG, Q 6 HRS, PRN
     Route: 048
  7. METFORMIN [Concomitant]
     Indication: DIABETES MELLITUS
     Dosage: UNK
     Route: 048
  8. GLYBURIDE [Concomitant]
     Indication: DIABETES MELLITUS
     Dosage: UNK

REACTIONS (3)
  - Mental impairment [Not Recovered/Not Resolved]
  - Drug ineffective [Recovered/Resolved]
  - Off label use [Not Recovered/Not Resolved]
